FAERS Safety Report 23158342 (Version 1)
Quarter: 2023Q4

REPORT INFORMATION
  Report Type: Report from Study
  Country: RO (occurrence: RO)
  Receive Date: 20231108
  Receipt Date: 20231108
  Transmission Date: 20240110
  Serious: Yes (Death, Other)
  Sender: FDA-Public Use
  Company Number: RO-ABBVIE-5407697

PATIENT
  Age: 76 Year
  Sex: Female

DRUGS (2)
  1. CARBIDOPA\LEVODOPA [Suspect]
     Active Substance: CARBIDOPA\LEVODOPA
     Indication: Parkinson^s disease
     Dosage: DM=8.00 DC=2.70 ED=1.70 NRED=2; DMN=0.00 DCN=0.00 EDN=0.00 NREDN=0
     Route: 050
     Dates: start: 20171003, end: 20231107
  2. CARBIDOPA\LEVODOPA [Suspect]
     Active Substance: CARBIDOPA\LEVODOPA

REACTIONS (8)
  - Cardio-respiratory arrest [Fatal]
  - Decreased appetite [Unknown]
  - General physical condition abnormal [Unknown]
  - Somnolence [Unknown]
  - Dysphagia [Unknown]
  - Aphasia [Unknown]
  - Unresponsive to stimuli [Unknown]
  - Somnolence [Fatal]

NARRATIVE: CASE EVENT DATE: 20230901
